FAERS Safety Report 20338302 (Version 12)
Quarter: 2024Q2

REPORT INFORMATION
  Report Type: Report from Study
  Country: CA (occurrence: CA)
  Receive Date: 20220115
  Receipt Date: 20240424
  Transmission Date: 20240715
  Serious: Yes (Hospitalization, Other)
  Sender: FDA-Public Use
  Company Number: CA-NOVARTISPH-NVSC2020CA332489

PATIENT
  Age: 60 Year
  Sex: Male

DRUGS (6)
  1. COSENTYX [Suspect]
     Active Substance: SECUKINUMAB
     Indication: Psoriasis
     Dosage: 300 MG, QMO
     Route: 058
     Dates: start: 20201029
  2. COSENTYX [Suspect]
     Active Substance: SECUKINUMAB
     Dosage: 300 MG, Q2W
     Route: 058
  3. COSENTYX [Suspect]
     Active Substance: SECUKINUMAB
     Dosage: 300 MG, QMO
     Route: 058
  4. HUMIRA [Concomitant]
     Active Substance: ADALIMUMAB
     Indication: Product used for unknown indication
     Dosage: UNK
     Route: 065
  5. ENBREL [Concomitant]
     Active Substance: ETANERCEPT
     Indication: Product used for unknown indication
     Dosage: UNK
     Route: 065
  6. METHOTREXATE [Concomitant]
     Active Substance: METHOTREXATE
     Indication: Product used for unknown indication
     Dosage: UNK
     Route: 065

REACTIONS (19)
  - Unevaluable event [Unknown]
  - Prostate cancer [Recovering/Resolving]
  - Bladder injury [Unknown]
  - Post procedural complication [Unknown]
  - Grip strength decreased [Unknown]
  - Skin laceration [Unknown]
  - Affect lability [Unknown]
  - Depression [Unknown]
  - Mental disorder [Unknown]
  - Confusional state [Unknown]
  - Memory impairment [Unknown]
  - Psoriasis [Unknown]
  - Disease recurrence [Unknown]
  - Feeling abnormal [Unknown]
  - Illness [Unknown]
  - Decreased appetite [Unknown]
  - Mobility decreased [Unknown]
  - Emotional distress [Unknown]
  - Psychiatric symptom [Unknown]

NARRATIVE: CASE EVENT DATE: 20220101
